FAERS Safety Report 15935034 (Version 1)
Quarter: 2019Q1

REPORT INFORMATION
  Report Type: Other
  Country: US (occurrence: US)
  Receive Date: 20190207
  Receipt Date: 20190207
  Transmission Date: 20190417
  Serious: Yes (Death)
  Sender: FDA-Public Use
  Company Number: US-ALSI-201400248

PATIENT
  Age: 41 Year
  Sex: Male

DRUGS (2)
  1. NITROUS OXIDE. [Suspect]
     Active Substance: NITROUS OXIDE
     Indication: DRUG DEPENDENCE
     Route: 055
  2. OXYGEN. [Concomitant]
     Active Substance: OXYGEN

REACTIONS (9)
  - Subacute combined cord degeneration [Fatal]
  - Depressed mood [Fatal]
  - Completed suicide [Fatal]
  - Euphoric mood [Fatal]
  - Drug dependence [Fatal]
  - Therapeutic response changed [Fatal]
  - Hallucination [Fatal]
  - Anxiety [Fatal]
  - Mania [Fatal]
